FAERS Safety Report 22125666 (Version 2)
Quarter: 2023Q2

REPORT INFORMATION
  Report Type: Spontaneous
  Country: US (occurrence: None)
  Receive Date: 20230322
  Receipt Date: 20230418
  Transmission Date: 20230721
  Serious: No
  Sender: FDA-Public Use
  Company Number: 2023A048091

PATIENT

DRUGS (3)
  1. IMFINZI [Suspect]
     Active Substance: DURVALUMAB
     Indication: Biliary tract disorder
  2. GEMCITABINE [Suspect]
     Active Substance: GEMCITABINE
     Indication: Biliary tract disorder
  3. CISPLATIN [Suspect]
     Active Substance: CISPLATIN
     Indication: Biliary tract disorder

REACTIONS (1)
  - Cytopenia [Unknown]
